FAERS Safety Report 9217124 (Version 1)
Quarter: 2013Q2

REPORT INFORMATION
  Report Type: Report from Study
  Country: CA (occurrence: CA)
  Receive Date: 20130408
  Receipt Date: 20130408
  Transmission Date: 20140414
  Serious: Yes (Other)
  Sender: FDA-Public Use
  Company Number: CA-JNJFOC-20130401160

PATIENT
  Age: 52 Year
  Sex: Male
  Weight: 97 kg

DRUGS (1)
  1. REMICADE [Suspect]
     Indication: ANKYLOSING SPONDYLITIS
     Route: 042
     Dates: start: 20070301

REACTIONS (2)
  - Papillary thyroid cancer [Not Recovered/Not Resolved]
  - Dermal cyst [Not Recovered/Not Resolved]
